FAERS Safety Report 11326610 (Version 1)
Quarter: 2015Q3

REPORT INFORMATION
  Report Type: Report from Study
  Country: US (occurrence: None)
  Receive Date: 20150730
  Receipt Date: 20150730
  Transmission Date: 20151125
  Serious: Yes (Hospitalization, Other)
  Sender: FDA-Public Use
  Company Number: US-2015CRT000542

PATIENT
  Sex: Male

DRUGS (3)
  1. LOVENOX [Suspect]
     Active Substance: ENOXAPARIN SODIUM
     Indication: PRODUCT USED FOR UNKNOWN INDICATION
     Route: 058
     Dates: end: 20150702
  2. KORLYM [Suspect]
     Active Substance: MIFEPRISTONE
     Indication: CUSHING^S SYNDROME
     Route: 048
     Dates: start: 20150620
  3. COUMADIN [Suspect]
     Active Substance: WARFARIN SODIUM
     Indication: PRODUCT USED FOR UNKNOWN INDICATION
     Route: 048
     Dates: end: 20150702

REACTIONS (10)
  - Oliguria [None]
  - Viral diarrhoea [None]
  - Dysphagia [None]
  - Decreased appetite [None]
  - Oesophageal obstruction [None]
  - International normalised ratio abnormal [None]
  - Nausea [None]
  - Mental status changes [None]
  - Renal impairment [None]
  - Prothrombin time abnormal [None]

NARRATIVE: CASE EVENT DATE: 2015
